FAERS Safety Report 10151972 (Version 4)
Quarter: 2014Q2

REPORT INFORMATION
  Report Type: Spontaneous
  Country: US (occurrence: US)
  Receive Date: 20140505
  Receipt Date: 20140626
  Transmission Date: 20141212
  Serious: Yes (Other)
  Sender: FDA-Public Use
  Company Number: US-AMGEN-USASP2014031510

PATIENT
  Sex: Female

DRUGS (9)
  1. FILGRASTIM [Suspect]
     Indication: NEUTROPHIL COUNT DECREASED
     Dosage: UNK
     Route: 065
     Dates: start: 20130524
  2. PEGINTERFERON ALFA-2A [Suspect]
     Indication: CHRONIC HEPATITIS C
     Dosage: 180 MCG, 1 IN 1 WK
     Route: 058
     Dates: start: 20130222, end: 20130405
  3. PEGINTERFERON ALFA-2A [Suspect]
     Dosage: 135 MCG, 1 IN 1 WK
     Route: 058
     Dates: start: 20130412, end: 20130419
  4. PEGINTERFERON ALFA-2A [Suspect]
     Dosage: 90 MCG, 1 IN 1 WK
     Route: 058
     Dates: start: 20130512, end: 20130915
  5. REBETOL [Suspect]
     Indication: CHRONIC HEPATITIS C
     Dosage: 3 DF, 1 IN 1 D
     Route: 048
     Dates: start: 20130222, end: 20130222
  6. REBETOL [Suspect]
     Dosage: 6 DF (3 DF, 2 IN 1 D)
     Route: 065
     Dates: start: 20130223, end: 20130919
  7. BOCEPREVIR [Suspect]
     Indication: CHRONIC HEPATITIS C
     Dosage: 4 DF, 3 IN 1 D
     Route: 048
     Dates: start: 20130411, end: 20130917
  8. BUPRENORPHINE HYDROCHLORIDE W/NALOXONE HCL [Concomitant]
     Dosage: UNK
     Route: 060
     Dates: start: 200501
  9. CYANOCOBALAMIN [Concomitant]
     Dosage: UNK
     Dates: start: 20130304

REACTIONS (2)
  - Exposure via father [Unknown]
  - Miscarriage of partner [Recovered/Resolved]
